APPROVED DRUG PRODUCT: CARISOPRODOL
Active Ingredient: CARISOPRODOL
Strength: 350MG
Dosage Form/Route: TABLET;ORAL
Application: A090988 | Product #001 | TE Code: AA
Applicant: NATCO PHARMA LTD
Approved: Oct 28, 2014 | RLD: No | RS: No | Type: RX